FAERS Safety Report 8344938-1 (Version None)
Quarter: 2012Q2

REPORT INFORMATION
  Report Type: 
  Country: None (occurrence: None)
  Receive Date: 20120508
  Receipt Date: 20120504
  Transmission Date: 20120825
  Serious: Yes (Life-Threatening, Hospitalization, Other)
  Sender: FDA-Public Use
  Company Number: US-MERCK-1203USA01511

PATIENT
  Age: 53 Year
  Sex: Female

DRUGS (1)
  1. PRIMAXIN [Suspect]
     Indication: SEPTIC SHOCK
     Route: 042

REACTIONS (1)
  - ADVERSE EVENT [None]
